FAERS Safety Report 18861519 (Version 2)
Quarter: 2021Q1

REPORT INFORMATION
  Report Type: Spontaneous
  Country: CN (occurrence: CN)
  Receive Date: 20210208
  Receipt Date: 20210310
  Transmission Date: 20210420
  Serious: Yes (Other)
  Sender: FDA-Public Use
  Company Number: NVSC2021CN026247

PATIENT
  Age: 41 Year
  Sex: Male

DRUGS (4)
  1. SECUKINUMAB. [Suspect]
     Active Substance: SECUKINUMAB
     Indication: PSORIASIS
     Dosage: 0.3 G, QW
     Route: 065
  2. USTEKINUMAB [Suspect]
     Active Substance: USTEKINUMAB
     Indication: PSORIASIS
     Dosage: 0.045 G
     Route: 065
     Dates: start: 201708, end: 201803
  3. SECUKINUMAB. [Suspect]
     Active Substance: SECUKINUMAB
     Dosage: 0.3 G, QMO
     Route: 065
  4. IXEKIZUMAB [Suspect]
     Active Substance: IXEKIZUMAB
     Indication: PSORIASIS
     Dosage: 0.08 G, QMO
     Route: 065
     Dates: start: 201804, end: 201806

REACTIONS (1)
  - Crohn^s disease [Recovering/Resolving]
